FAERS Safety Report 7995705-X (Version None)
Quarter: 2011Q4

REPORT INFORMATION
  Report Type: 
  Country: None (occurrence: None)
  Receive Date: 20111216
  Receipt Date: 20111207
  Transmission Date: 20120403
  Serious: Yes (Other)
  Sender: FDA-Public Use
  Company Number: 2011SP057429

PATIENT
  Sex: Female

DRUGS (6)
  1. CLARITIN-D 24 HOUR [Suspect]
     Indication: PRODUCT USED FOR UNKNOWN INDICATION
     Dosage: 10 MG, PO
     Route: 048
     Dates: start: 20110101
  2. LISINOPRIL [Concomitant]
  3. THYROID MEDICATION [Concomitant]
  4. POTASSIOUM [Concomitant]
  5. VITAMIN TAB [Concomitant]
  6. ATENOLOL [Concomitant]

REACTIONS (1)
  - BLOOD PRESSURE INCREASED [None]
